FAERS Safety Report 6979329-9 (Version None)
Quarter: 2010Q3

REPORT INFORMATION
  Report Type: 
  Country: None (occurrence: None)
  Receive Date: 20100913
  Receipt Date: 20100809
  Transmission Date: 20110219
  Serious: Yes (Hospitalization, Other)
  Sender: FDA-Public Use
  Company Number: US-BAYER-200939096NA

PATIENT
  Age: 32 Year
  Sex: Female
  Weight: 91 kg

DRUGS (13)
  1. YASMIN [Suspect]
     Indication: PREMENSTRUAL SYNDROME
     Dosage: 3 MG OF DROSPIRENONE AND 0.03 MG OF ETHINYL ESTRADIOL
     Route: 048
     Dates: start: 20060425, end: 20071101
  2. PHENTERMINE [Concomitant]
  3. CHERATUSSIN [Concomitant]
  4. CLARITHROMYCIN [Concomitant]
  5. ZYRTEC [Concomitant]
  6. ADIPEX [Concomitant]
  7. AMOXICILLIN [Concomitant]
  8. DARVOCET-N 100 [Concomitant]
     Indication: MUSCLE STRAIN
  9. DILAUDID [Concomitant]
     Indication: PYELONEPHRITIS
     Route: 042
     Dates: start: 20080209
  10. LEVAQUIN [Concomitant]
     Indication: PYELONEPHRITIS
     Route: 042
     Dates: start: 20080209
  11. ADVIL LIQUI-GELS [Concomitant]
     Dosage: ASW NEEDED
  12. ALEVE (CAPLET) [Concomitant]
     Dosage: AS NEEDED
  13. EXCEDRIN (MIGRAINE) [Concomitant]
     Dosage: AS NEEDED

REACTIONS (4)
  - DEEP VEIN THROMBOSIS [None]
  - OEDEMA PERIPHERAL [None]
  - PAIN IN EXTREMITY [None]
  - THROMBOSIS [None]
